FAERS Safety Report 9891632 (Version 1)
Quarter: 2014Q1

REPORT INFORMATION
  Report Type: Spontaneous
  Country: US (occurrence: US)
  Receive Date: 20140212
  Receipt Date: 20140212
  Transmission Date: 20141002
  Serious: No
  Sender: FDA-Public Use
  Company Number: US-009507513-1402USA003304

PATIENT
  Sex: Male

DRUGS (6)
  1. DULERA [Suspect]
     Indication: ASTHMA
     Dosage: 200/5 MCG, 2 PUFF TWICE DAILY
     Route: 055
     Dates: start: 201302
  2. AMLODIPINE [Concomitant]
  3. METOPROLOL [Concomitant]
  4. DILAUDID [Concomitant]
  5. ROBAXIN [Concomitant]
  6. ZOLPIDEM TARTRATE [Concomitant]

REACTIONS (7)
  - Overdose [Unknown]
  - Underdose [Unknown]
  - Dyspnoea [Not Recovered/Not Resolved]
  - Wrong technique in drug usage process [Unknown]
  - Product cleaning inadequate [Unknown]
  - Product lot number issue [Unknown]
  - Product quality issue [Unknown]
